FAERS Safety Report 5258028-8 (Version None)
Quarter: 2007Q1

REPORT INFORMATION
  Report Type: 
  Country: None (occurrence: None)
  Receive Date: 20070307
  Receipt Date: 20070115
  Transmission Date: 20070707
  Serious: Yes (Other)
  Sender: FDA-Public Use
  Company Number: US-GLAXOSMITHKLINE-A0631934A

PATIENT
  Age: 51 Year
  Sex: Male

DRUGS (3)
  1. REQUIP [Suspect]
     Indication: RESTLESS LEGS SYNDROME
     Dosage: .5MG PER DAY
     Route: 048
     Dates: start: 20061206, end: 20061217
  2. ZOLOFT [Concomitant]
  3. IMITREX [Concomitant]

REACTIONS (4)
  - COLD SWEAT [None]
  - FLUSHING [None]
  - ORTHOSTATIC HYPOTENSION [None]
  - SYNCOPE [None]
